FAERS Safety Report 10178429 (Version 3)
Quarter: 2014Q2

REPORT INFORMATION
  Report Type: Spontaneous
  Country: DE (occurrence: DE)
  Receive Date: 20140519
  Receipt Date: 20140602
  Transmission Date: 20141212
  Serious: Yes (Life-Threatening, Hospitalization, Other)
  Sender: FDA-Public Use
  Company Number: DE-JNJFOC-20140507006

PATIENT
  Age: 56 Year
  Sex: Male
  Weight: 90 kg

DRUGS (6)
  1. XARELTO [Suspect]
     Indication: CEREBROVASCULAR ACCIDENT PROPHYLAXIS
     Route: 048
     Dates: start: 20130131, end: 20130801
  2. XARELTO [Suspect]
     Indication: ATRIAL FIBRILLATION
     Route: 048
     Dates: start: 20130131, end: 20130801
  3. ATACAND PLUS [Concomitant]
     Indication: HYPERTENSION
     Route: 048
     Dates: start: 201109
  4. BELOC ZOK [Concomitant]
     Indication: HYPERTENSION
     Route: 048
     Dates: start: 201109
  5. AMLODIPINE [Concomitant]
     Indication: HYPERTENSION
     Route: 048
     Dates: start: 201109
  6. JODID [Concomitant]
     Indication: THYROID NEOPLASM
     Route: 048

REACTIONS (2)
  - Hepatic failure [Recovered/Resolved]
  - Liver function test abnormal [Recovered/Resolved]
